FAERS Safety Report 5750419-1 (Version None)
Quarter: 2008Q2

REPORT INFORMATION
  Report Type: 
  Country: None (occurrence: None)
  Receive Date: 20080528
  Receipt Date: 20080523
  Transmission Date: 20081010
  Serious: Yes (Life-Threatening, Hospitalization)
  Sender: FDA-Public Use
  Company Number: FR-NOVOPROD-275586

PATIENT
  Age: 80 Year
  Sex: Female

DRUGS (3)
  1. REPAGLINIDE [Suspect]
     Indication: DIABETES MELLITUS
     Dosage: 2 MG, QD
     Dates: start: 20080422
  2. NOVOLOG MIX 70/30 [Suspect]
     Indication: DIABETES MELLITUS
     Dosage: 20IU AM. 22IU PM, QD
  3. STAGID [Concomitant]

REACTIONS (2)
  - APHASIA [None]
  - HYPOGLYCAEMIC COMA [None]
